FAERS Safety Report 25666810 (Version 1)
Quarter: 2025Q3

REPORT INFORMATION
  Report Type: Spontaneous
  Country: US (occurrence: US)
  Receive Date: 20250811
  Receipt Date: 20250811
  Transmission Date: 20251020
  Serious: No
  Sender: MERCK SHARP & DOHME LLC
  Company Number: US-009507513-2313535

PATIENT
  Age: 42 Year
  Sex: Female

DRUGS (15)
  1. SOTATERCEPT [Suspect]
     Active Substance: SOTATERCEPT
     Dates: end: 20250708
  2. SOTATERCEPT [Suspect]
     Active Substance: SOTATERCEPT
  3. SOTATERCEPT [Suspect]
     Active Substance: SOTATERCEPT
  4. SOTATERCEPT [Suspect]
     Active Substance: SOTATERCEPT
  5. TREPROSTINIL SODIUM [Suspect]
     Active Substance: TREPROSTINIL SODIUM
     Route: 042
     Dates: start: 20250227
  6. DILTIAZEM [Concomitant]
     Active Substance: DILTIAZEM
  7. DULOXETINE HYDROCHLORIDE [Concomitant]
     Active Substance: DULOXETINE HYDROCHLORIDE
  8. FUROSEMIDE [Concomitant]
     Active Substance: FUROSEMIDE
  9. Tylenol extra strength (paracetamol) [Concomitant]
  10. SILDENAFIL CITRATE [Concomitant]
     Active Substance: SILDENAFIL CITRATE
  11. OPSUMIT [Concomitant]
     Active Substance: MACITENTAN
  12. OXYGEN [Concomitant]
     Active Substance: OXYGEN
  13. multivitamin gummies [Concomitant]
  14. TOLTERODINE TARTRATE [Concomitant]
     Active Substance: TOLTERODINE TARTRATE
  15. MYRBETRIQ [Concomitant]
     Active Substance: MIRABEGRON

REACTIONS (1)
  - Injection site bruising [Recovering/Resolving]

NARRATIVE: CASE EVENT DATE: 20250701
